FAERS Safety Report 5129682-6 (Version None)
Quarter: 2006Q4

REPORT INFORMATION
  Report Type: 
  Country: None (occurrence: None)
  Receive Date: 20061018
  Receipt Date: 20060829
  Transmission Date: 20070319
  Serious: Yes (Life-Threatening, Hospitalization, Disabling)
  Sender: FDA-Public Use
  Company Number: JP-JPN-A200603412

PATIENT
  Age: 51 Year
  Sex: Female

DRUGS (10)
  1. PAXIL [Suspect]
     Indication: DEPRESSION
     Route: 048
     Dates: start: 20060714, end: 20060803
  2. DOGMATYL [Suspect]
     Indication: DEPRESSION
     Dosage: 50MG THREE TIMES PER DAY
     Route: 048
     Dates: start: 20060714, end: 20060805
  3. LEXOTAN [Suspect]
     Indication: DEPRESSION
     Dosage: 2MG THREE TIMES PER DAY
     Route: 048
     Dates: start: 20060714, end: 20060802
  4. GASMOTIN [Suspect]
     Indication: GASTRITIS
     Dosage: 5MG THREE TIMES PER DAY
     Route: 048
     Dates: start: 20060714, end: 20060805
  5. VEGETAMIN [Suspect]
     Indication: DEPRESSION
     Dosage: 1TAB PER DAY
     Route: 048
     Dates: start: 20060714, end: 20060802
  6. BENZALIN [Suspect]
     Indication: DEPRESSION
     Dosage: 5MG PER DAY
     Route: 048
     Dates: start: 20060714, end: 20060805
  7. GOODMIN [Suspect]
     Indication: DEPRESSION
     Dosage: .25MG PER DAY
     Route: 048
     Dates: start: 20060724, end: 20060805
  8. CHLORDIAZEPOXIDE [Suspect]
     Indication: DEPRESSION
     Dosage: 10MG PER DAY
     Route: 048
     Dates: start: 20060803, end: 20060805
  9. FLUVOXAMINE MALEATE [Concomitant]
     Indication: DEPRESSION
  10. FLUNITRAZEPAM [Concomitant]
     Indication: DEPRESSION

REACTIONS (3)
  - PURULENCE [None]
  - PYREXIA [None]
  - STEVENS-JOHNSON SYNDROME [None]
